FAERS Safety Report 25270758 (Version 2)
Quarter: 2025Q2

REPORT INFORMATION
  Report Type: Spontaneous
  Country: PR (occurrence: PR)
  Receive Date: 20250505
  Receipt Date: 20250513
  Transmission Date: 20250716
  Serious: Yes (Death, Other)
  Sender: MEITHEAL PHARMACEUTICALS
  Company Number: PR-MEITHEAL-2025MPLIT00157

PATIENT
  Age: 50 Year
  Sex: Female

DRUGS (2)
  1. CYTARABINE [Suspect]
     Active Substance: CYTARABINE
     Indication: Acute myeloid leukaemia
     Route: 065
  2. AMINOCAPROIC ACID [Concomitant]
     Active Substance: AMINOCAPROIC ACID
     Route: 065

REACTIONS (2)
  - Pulmonary alveolar haemorrhage [Fatal]
  - Cardio-respiratory arrest [Fatal]
